FAERS Safety Report 11405172 (Version 2)
Quarter: 2015Q3

REPORT INFORMATION
  Report Type: Spontaneous
  Country: PL (occurrence: PL)
  Receive Date: 20150821
  Receipt Date: 20150904
  Transmission Date: 20151125
  Serious: Yes (Hospitalization)
  Sender: FDA-Public Use
  Company Number: PHHY2015PL097685

PATIENT
  Age: 74 Year
  Sex: Male

DRUGS (1)
  1. METFORMINE HCL [Suspect]
     Active Substance: METFORMIN HYDROCHLORIDE
     Indication: TYPE 2 DIABETES MELLITUS
     Route: 065

REACTIONS (4)
  - Respiratory depression [Recovered/Resolved]
  - Metabolic acidosis [Recovered/Resolved]
  - Cerebrovascular accident [Recovering/Resolving]
  - Bradycardia [Recovered/Resolved]
